FAERS Safety Report 4735354-X (Version None)
Quarter: 2005Q3

REPORT INFORMATION
  Report Type: 
  Country: None (occurrence: None)
  Receive Date: 20050805
  Receipt Date: 20050512
  Transmission Date: 20060218
  Serious: Yes (Other)
  Sender: FDA-Public Use
  Company Number: US-ROCHE-404752

PATIENT
  Age: 52 Year
  Sex: Female

DRUGS (2)
  1. PEGASYS [Suspect]
     Route: 065
     Dates: start: 20050115
  2. COPEGUS [Suspect]
     Route: 048
     Dates: start: 20050115

REACTIONS (14)
  - AMNESIA [None]
  - ANGER [None]
  - ANXIETY [None]
  - COUGH [None]
  - DEPRESSION [None]
  - DIVERTICULITIS [None]
  - DYSPHAGIA [None]
  - FALL [None]
  - FATIGUE [None]
  - IRRITABILITY [None]
  - MOOD SWINGS [None]
  - POSTNASAL DRIP [None]
  - RECTAL HAEMORRHAGE [None]
  - WEIGHT DECREASED [None]
